FAERS Safety Report 15595278 (Version 2)
Quarter: 2018Q4

REPORT INFORMATION
  Report Type: Report from Study
  Country: US (occurrence: US)
  Receive Date: 20181107
  Receipt Date: 20181207
  Transmission Date: 20190205
  Serious: No
  Sender: FDA-Public Use
  Company Number: PHEH2018US046625

PATIENT
  Sex: Male

DRUGS (1)
  1. COSENTYX [Suspect]
     Active Substance: SECUKINUMAB
     Indication: PSORIATIC ARTHROPATHY
     Route: 058

REACTIONS (6)
  - Underdose [Unknown]
  - Device issue [Unknown]
  - Arthralgia [Unknown]
  - Therapeutic response shortened [Unknown]
  - Mood altered [Unknown]
  - Drug ineffective [Unknown]
